FAERS Safety Report 6162909-0 (Version None)
Quarter: 2009Q2

REPORT INFORMATION
  Report Type: 
  Country: None (occurrence: None)
  Receive Date: 20090421
  Receipt Date: 20090130
  Transmission Date: 20091009
  Serious: Yes (Hospitalization)
  Sender: FDA-Public Use
  Company Number: US-ASTRAZENECA-2009UW02935

PATIENT
  Age: 31303 Day
  Sex: Female

DRUGS (2)
  1. TOPROL-XL [Suspect]
     Route: 048
     Dates: start: 20070101
  2. TOPROL-XL [Suspect]
     Route: 048

REACTIONS (1)
  - MYOCARDIAL INFARCTION [None]
